FAERS Safety Report 5092066-3 (Version None)
Quarter: 2006Q3

REPORT INFORMATION
  Report Type: 
  Country: None (occurrence: None)
  Receive Date: 20060825
  Receipt Date: 20060810
  Transmission Date: 20061208
  Serious: Yes (Other)
  Sender: FDA-Public Use
  Company Number: 06-000858

PATIENT
  Age: 21 Year
  Sex: Female
  Weight: 70 kg

DRUGS (6)
  1. DORYX [Suspect]
     Indication: ACNE
     Dosage: 100 MG, QD, ORAL
     Route: 048
     Dates: start: 20060516
  2. DORYX [Suspect]
     Indication: ASTHMA
     Dosage: 100 MG, QD, ORAL
     Route: 048
     Dates: start: 20060516
  3. CYPROTERONE ACETATE (CYPROTERONE ACETATE) [Concomitant]
  4. ETHINYL ESTRADIOL TAB [Concomitant]
  5. BUDESONIDE [Concomitant]
  6. SALBUTAMOL (SALBUTAMOL) INHALER [Concomitant]

REACTIONS (2)
  - CHEST PAIN [None]
  - OESOPHAGEAL PAIN [None]
